FAERS Safety Report 26201171 (Version 1)
Quarter: 2025Q4

REPORT INFORMATION
  Report Type: Spontaneous
  Country: GB (occurrence: GB)
  Receive Date: 20251226
  Receipt Date: 20251226
  Transmission Date: 20260118
  Serious: No
  Sender: ALKEM
  Company Number: None

PATIENT
  Age: 50 Year
  Sex: Female

DRUGS (3)
  1. NIFEDIPINE [Suspect]
     Active Substance: NIFEDIPINE
     Indication: Raynaud^s phenomenon
     Dosage: UNK
     Route: 065
  2. SILDENAFIL [Suspect]
     Active Substance: SILDENAFIL
     Indication: Raynaud^s phenomenon
     Dosage: 25 MILLIGRAM, OD (ONCE DAILY)
     Route: 065
  3. SILDENAFIL [Suspect]
     Active Substance: SILDENAFIL
     Dosage: 50 MILLIGRAM, TID (THREE TIMES DAILY)
     Route: 065

REACTIONS (4)
  - Drug intolerance [Unknown]
  - Hypotension [Unknown]
  - Headache [Unknown]
  - Therapy partial responder [Unknown]
